FAERS Safety Report 5568861-0 (Version None)
Quarter: 2007Q4

REPORT INFORMATION
  Report Type: 
  Country: None (occurrence: None)
  Receive Date: 20071220
  Receipt Date: 20070215
  Transmission Date: 20080405
  Serious: No
  Sender: FDA-Public Use
  Company Number: A0639722A

PATIENT
  Age: 57 Year
  Sex: Male

DRUGS (11)
  1. AVODART [Suspect]
     Indication: BENIGN PROSTATIC HYPERPLASIA
     Dosage: .5MG PER DAY
     Route: 048
     Dates: start: 20051201
  2. COREG [Concomitant]
  3. ASPIRIN [Concomitant]
  4. LEXAPRO [Concomitant]
  5. DIOVAN [Concomitant]
  6. PRAVACHOL [Concomitant]
  7. SLOW MAG [Concomitant]
  8. NIASPAN [Concomitant]
  9. NORVASC [Concomitant]
  10. NEXIUM [Concomitant]
  11. UNKNOWN MEDICATION [Concomitant]

REACTIONS (2)
  - DIARRHOEA [None]
  - MEDICATION RESIDUE [None]
